FAERS Safety Report 9700266 (Version 2)
Quarter: 2013Q4

REPORT INFORMATION
  Report Type: Spontaneous
  Country: US (occurrence: US)
  Receive Date: 20131121
  Receipt Date: 20131203
  Transmission Date: 20140711
  Serious: No
  Sender: FDA-Public Use
  Company Number: US-BAYER-2013-138621

PATIENT
  Sex: Female

DRUGS (2)
  1. NATAZIA [Suspect]
     Indication: HEADACHE
     Route: 048
  2. NATAZIA [Suspect]
     Indication: HORMONE LEVEL ABNORMAL

REACTIONS (2)
  - Off label use [None]
  - Product packaging quantity issue [None]
